FAERS Safety Report 18619641 (Version 1)
Quarter: 2020Q4

REPORT INFORMATION
  Report Type: Spontaneous
  Country: US (occurrence: US)
  Receive Date: 20201215
  Receipt Date: 20201215
  Transmission Date: 20210114
  Serious: Yes (Other)
  Sender: FDA-Public Use
  Company Number: US-PFIZER INC-2020485918

PATIENT
  Age: 56 Year
  Sex: Female

DRUGS (1)
  1. GABAPENTIN. [Suspect]
     Active Substance: GABAPENTIN
     Dosage: UNK

REACTIONS (7)
  - Mental disorder [Unknown]
  - Dizziness [Unknown]
  - Dementia Alzheimer^s type [Unknown]
  - Road traffic accident [Unknown]
  - Somnolence [Unknown]
  - Sedation [Unknown]
  - Impaired driving ability [Unknown]

NARRATIVE: CASE EVENT DATE: 202004
